FAERS Safety Report 8216179-X (Version None)
Quarter: 2012Q1

REPORT INFORMATION
  Report Type: 
  Country: None (occurrence: None)
  Receive Date: 20120229
  Receipt Date: 20110705
  Transmission Date: 20120608
  Serious: Yes (Hospitalization)
  Sender: FDA-Public Use
  Company Number: PHHY2011US61397

PATIENT
  Age: 37 Year
  Sex: Female
  Weight: 87 kg

DRUGS (7)
  1. METHYLPREDNISOLONE [Concomitant]
  2. PROGRAF [Concomitant]
  3. SIROLIMUS (RAPAMUNE) [Concomitant]
  4. NEORAL [Suspect]
     Indication: PROPHYLAXIS AGAINST TRANSPLANT REJECTION
  5. CELLCEPT [Concomitant]
  6. ASPIRIN [Concomitant]
  7. LIPITOR [Concomitant]

REACTIONS (1)
  - SEPSIS [None]
